FAERS Safety Report 19454114 (Version 2)
Quarter: 2021Q4

REPORT INFORMATION
  Report Type: Report from Study
  Country: NL (occurrence: NL)
  Receive Date: 20210623
  Receipt Date: 20211007
  Transmission Date: 20220303
  Serious: Yes (Hospitalization)
  Sender: FDA-Public Use
  Company Number: NL-ROCHE-2851465

PATIENT
  Age: 64 Year
  Sex: Female

DRUGS (2)
  1. ATEZOLIZUMAB [Suspect]
     Active Substance: ATEZOLIZUMAB
     Indication: Breast cancer
     Dosage: MOST RECENT DOSE OF ATEZOLIZUMAB ON 25/MAY/2021.
     Route: 041
     Dates: start: 20201215
  2. CARBOPLATIN [Suspect]
     Active Substance: CARBOPLATIN
     Indication: Breast cancer
     Dosage: AUC 1.5?MOST RECENT DOSE OF CARBOPLATIN ON 02/MAR/2021.
     Route: 042
     Dates: start: 20201215

REACTIONS (1)
  - Kidney infection [Recovered/Resolved with Sequelae]

NARRATIVE: CASE EVENT DATE: 20210615
